FAERS Safety Report 15293404 (Version 1)
Quarter: 2018Q4

REPORT INFORMATION
  Report Type: Spontaneous
  Country: US (occurrence: US)
  Receive Date: 20180820
  Receipt Date: 20180820
  Transmission Date: 20190204
  Serious: No
  Sender: FDA-Public Use
  Company Number: US-TEVA-800635ACC

PATIENT
  Age: 51 Year
  Sex: Female

DRUGS (1)
  1. GLYCIBRIDE [GLYBURIDE] [Suspect]
     Active Substance: GLYBURIDE
     Dates: start: 20170820

REACTIONS (5)
  - Palpitations [Not Recovered/Not Resolved]
  - Product quality issue [Unknown]
  - Product substitution issue [Unknown]
  - Insomnia [Not Recovered/Not Resolved]
  - Headache [Not Recovered/Not Resolved]

NARRATIVE: CASE EVENT DATE: 20170820
